FAERS Safety Report 9455847 (Version 1)
Quarter: 2013Q3

REPORT INFORMATION
  Report Type: Spontaneous
  Country: US (occurrence: US)
  Receive Date: 20130813
  Receipt Date: 20130813
  Transmission Date: 20140515
  Serious: No
  Sender: FDA-Public Use
  Company Number: US-PFIZER INC-2013234761

PATIENT
  Age: 50 Year
  Sex: Female
  Weight: 101.59 kg

DRUGS (2)
  1. CHANTIX [Suspect]
     Indication: SMOKING CESSATION THERAPY
     Dosage: 0.5 MG, 1X/DAY
     Route: 048
     Dates: start: 201106
  2. CHANTIX [Suspect]
     Dosage: UNK
     Route: 048

REACTIONS (1)
  - Abnormal dreams [Unknown]
